FAERS Safety Report 9703746 (Version 3)
Quarter: 2016Q3

REPORT INFORMATION
  Report Type: Report from Study
  Country: US (occurrence: US)
  Receive Date: 20131122
  Receipt Date: 20160712
  Transmission Date: 20161109
  Serious: Yes (Hospitalization, Disabling, Other)
  Sender: FDA-Public Use
  Company Number: PHEH2013US016471

PATIENT
  Age: 52 Year
  Sex: Female

DRUGS (12)
  1. AMANTADINE [Concomitant]
     Active Substance: AMANTADINE
     Indication: PRODUCT USED FOR UNKNOWN INDICATION
     Route: 065
  2. ATIVAN [Concomitant]
     Active Substance: LORAZEPAM
     Indication: PRODUCT USED FOR UNKNOWN INDICATION
     Route: 065
  3. MICROGESTIN [Concomitant]
     Active Substance: ETHINYL ESTRADIOL\NORETHINDRONE ACETATE
     Indication: PRODUCT USED FOR UNKNOWN INDICATION
     Dosage: 1 DF, QD
     Route: 048
  4. MULTI-VIT [Concomitant]
     Active Substance: VITAMINS
     Indication: PRODUCT USED FOR UNKNOWN INDICATION
     Route: 065
  5. GILENYA [Suspect]
     Active Substance: FINGOLIMOD HYDROCHLORIDE
     Indication: MULTIPLE SCLEROSIS
     Dosage: 0.5 MG, QD
     Route: 048
     Dates: start: 20130102, end: 20130124
  6. ZYRTEC [Concomitant]
     Active Substance: CETIRIZINE HYDROCHLORIDE
     Indication: PRODUCT USED FOR UNKNOWN INDICATION
     Dosage: 10 MG, QD
     Route: 048
     Dates: start: 20120904
  7. VITAMIN D3 [Concomitant]
     Active Substance: CHOLECALCIFEROL
     Indication: PRODUCT USED FOR UNKNOWN INDICATION
     Route: 065
  8. VESICARE [Concomitant]
     Active Substance: SOLIFENACIN SUCCINATE
     Indication: HYPERTONIC BLADDER
     Dosage: 10 MG, QD
     Route: 048
  9. FLUTICASONE PROPIONATE. [Concomitant]
     Active Substance: FLUTICASONE PROPIONATE
     Indication: PRODUCT USED FOR UNKNOWN INDICATION
     Dosage: 2 SPRAYS IN EACH NOSTRIL
     Route: 045
     Dates: start: 20120910
  10. AMBIEN [Concomitant]
     Active Substance: ZOLPIDEM TARTRATE
     Indication: ANXIETY
     Dosage: 0.5 MG, TID
     Route: 048
  11. ZOSTAVAX [Concomitant]
     Active Substance: VARICELLA-ZOSTER VIRUS STRAIN OKA/MERCK LIVE ANTIGEN
     Indication: PRODUCT USED FOR UNKNOWN INDICATION
     Route: 065
  12. ESTRACE [Concomitant]
     Active Substance: ESTRADIOL
     Indication: PRODUCT USED FOR UNKNOWN INDICATION
     Route: 065

REACTIONS (29)
  - Asthenia [Unknown]
  - Diplopia [Recovering/Resolving]
  - Pain in extremity [Unknown]
  - Gait disturbance [Unknown]
  - Dysarthria [Unknown]
  - Multiple sclerosis relapse [Unknown]
  - Vision blurred [Unknown]
  - Tremor [Unknown]
  - Hypoaesthesia [Unknown]
  - Dysstasia [Unknown]
  - Fall [Unknown]
  - Posture abnormal [Unknown]
  - Pneumonia [Unknown]
  - Clumsiness [Unknown]
  - Visual impairment [Unknown]
  - Cerebellar ataxia [Unknown]
  - Progressive multifocal leukoencephalopathy [Recovered/Resolved with Sequelae]
  - Dysmetria [Unknown]
  - Balance disorder [Unknown]
  - Condition aggravated [Unknown]
  - Coordination abnormal [Unknown]
  - Eye movement disorder [Unknown]
  - Muscular weakness [Unknown]
  - Dysphagia [Unknown]
  - Speech disorder [Unknown]
  - Visual acuity reduced [Unknown]
  - Ataxia [Recovering/Resolving]
  - Cognitive disorder [Unknown]
  - Nystagmus [Unknown]

NARRATIVE: CASE EVENT DATE: 20130123
